FAERS Safety Report 9287221 (Version 1)
Quarter: 2013Q2

REPORT INFORMATION
  Report Type: Spontaneous
  Country: FI (occurrence: FI)
  Receive Date: 20130513
  Receipt Date: 20130513
  Transmission Date: 20140414
  Serious: Yes (Other)
  Sender: FDA-Public Use
  Company Number: FI-B.I. PHARMACEUTICALS,INC./RIDGEFIELD-2013-SW-00216SF

PATIENT
  Age: 89 Year
  Sex: Female

DRUGS (8)
  1. PRADAXA [Suspect]
     Indication: ATRIAL FIBRILLATION
     Dosage: 220 MG
     Route: 048
     Dates: start: 20111212, end: 20130411
  2. SEPRAM [Suspect]
     Indication: DEPRESSION
     Dosage: 10 MG
     Dates: start: 20121024
  3. KALCIPOS-D [Concomitant]
     Indication: OSTEOPOROSIS PROPHYLAXIS
     Dosage: 500MG/400IU TWICE DAILY
     Route: 048
     Dates: start: 20110207
  4. BISOPROLOL RATIOPHARM [Concomitant]
     Indication: HEART RATE
     Dosage: 1.25 MG
     Route: 048
     Dates: start: 20100223
  5. VAGIFEM [Concomitant]
     Indication: OESTROGEN THERAPY
     Dosage: 2.8571 MG
     Route: 067
     Dates: start: 20120206
  6. KEFEXIN [Concomitant]
     Indication: WOUND
     Dosage: 1000 MG
     Route: 048
     Dates: start: 20121023
  7. PERGION [Concomitant]
     Indication: CONSTIPATION
     Dosage: 12 G, 1-2 TIMES DAILY WHEN NEEDED
     Dates: start: 20110517
  8. PANADOL [Concomitant]
     Indication: PAIN
     Dosage: 500 MG, 1-2 X 1-2 WHEN NEEDED
     Dates: start: 20090317

REACTIONS (4)
  - Haematochezia [Not Recovered/Not Resolved]
  - Haemorrhage [Not Recovered/Not Resolved]
  - Haemoglobin decreased [Not Recovered/Not Resolved]
  - Drug interaction [Unknown]
